FAERS Safety Report 7986502-X (Version None)
Quarter: 2011Q4

REPORT INFORMATION
  Report Type: 
  Country: None (occurrence: None)
  Receive Date: 20111216
  Receipt Date: 20110201
  Transmission Date: 20120403
  Serious: No
  Sender: FDA-Public Use
  Company Number: US-BRISTOL-MYERS SQUIBB COMPANY-15522857

PATIENT
  Sex: Female

DRUGS (12)
  1. GUANFACINE HYDROCHLORIDE [Concomitant]
  2. LEXAPRO [Concomitant]
  3. CLONAZEPAM [Concomitant]
  4. SINGULAIR [Concomitant]
  5. MUCINEX [Concomitant]
  6. ESTRATEST [Concomitant]
  7. LUNESTA [Concomitant]
  8. ESTRADIOL [Concomitant]
  9. LAMICTAL [Concomitant]
  10. NEXIUM [Concomitant]
  11. ABILIFY [Suspect]
  12. ZOCOR [Concomitant]

REACTIONS (3)
  - WEIGHT INCREASED [None]
  - INCREASED APPETITE [None]
  - FOOD CRAVING [None]
